FAERS Safety Report 8276555-6 (Version None)
Quarter: 2012Q2

REPORT INFORMATION
  Report Type: 
  Country: None (occurrence: None)
  Receive Date: 20120412
  Receipt Date: 20120403
  Transmission Date: 20120825
  Serious: No
  Sender: FDA-Public Use
  Company Number: US-TEVA-2011004453

PATIENT
  Sex: Female
  Weight: 79.904 kg

DRUGS (8)
  1. VICODIN [Concomitant]
     Indication: PAIN
     Dosage: AS NEEDED
     Dates: start: 20010101
  2. TOPIRAMATE [Concomitant]
     Dates: start: 20040101, end: 20110626
  3. MULTI-VITAMINS [Concomitant]
     Dates: start: 20110711
  4. PILOCARPINE HYDROCHLORIDE [Concomitant]
     Indication: SJOGREN'S SYNDROME
     Dosage: 20 MILLIGRAM;
     Dates: start: 20060101
  5. EXCEDRIN (MIGRAINE) [Concomitant]
     Dates: start: 20100101
  6. SERTRALINE HYDROCHLORIDE [Concomitant]
     Indication: DEPRESSION
     Dates: start: 20090401, end: 20110626
  7. NUVIGIL [Suspect]
     Indication: SYSTEMIC LUPUS ERYTHEMATOSUS
     Dosage: 250 MILLIGRAM;
     Route: 048
     Dates: start: 20100201
  8. HYDROXYCHLOROQUINE SULFATE [Concomitant]
     Indication: FIBROMYALGIA
     Dosage: 300 MILLIGRAM;
     Dates: start: 20010101

REACTIONS (4)
  - OFF LABEL USE [None]
  - VAGINAL HAEMORRHAGE [None]
  - LIVE BIRTH [None]
  - UTERINE SPASM [None]
